FAERS Safety Report 19872757 (Version 1)
Quarter: 2021Q3

REPORT INFORMATION
  Report Type: Spontaneous
  Country: US (occurrence: US)
  Receive Date: 20210922
  Receipt Date: 20210922
  Transmission Date: 20211014
  Serious: Yes (Hospitalization)
  Sender: FDA-Public Use
  Company Number: None

PATIENT
  Age: 70 Year
  Sex: Female

DRUGS (1)
  1. KEYTRUDA [Suspect]
     Active Substance: PEMBROLIZUMAB
     Indication: ENDOMETRIAL CANCER
     Dosage: ?          OTHER FREQUENCY:Q3WK;?
     Route: 042
     Dates: start: 20200317

REACTIONS (2)
  - Intestinal obstruction [None]
  - Scar [None]

NARRATIVE: CASE EVENT DATE: 20210828
